FAERS Safety Report 13210182 (Version 6)
Quarter: 2018Q1

REPORT INFORMATION
  Report Type: Report from Study
  Country: None (occurrence: US)
  Receive Date: 20170210
  Receipt Date: 20180308
  Transmission Date: 20180508
  Serious: Yes (Other)
  Sender: FDA-Public Use
  Company Number: US-ABBVIE-16K-163-1772342-00

PATIENT
  Age: 40 Year
  Sex: Male

DRUGS (2)
  1. HUMIRA [Suspect]
     Active Substance: ADALIMUMAB
     Indication: RHEUMATOID ARTHRITIS
     Route: 058
  2. HUMIRA [Suspect]
     Active Substance: ADALIMUMAB
     Indication: ANKYLOSING SPONDYLITIS
     Route: 058

REACTIONS (51)
  - Seizure [Unknown]
  - Teeth brittle [Unknown]
  - Tremor [Unknown]
  - Peripheral venous disease [Unknown]
  - Sleep apnoea syndrome [Unknown]
  - Tooth erosion [Unknown]
  - Hypoaesthesia [Unknown]
  - Pulpitis dental [Unknown]
  - Burning sensation [Unknown]
  - Carpal tunnel syndrome [Unknown]
  - Skin burning sensation [Unknown]
  - Headache [Unknown]
  - Dysstasia [Unknown]
  - Osteoporosis [Unknown]
  - Gingival pain [Not Recovered/Not Resolved]
  - Gait disturbance [Unknown]
  - Immunodeficiency [Unknown]
  - Gingival swelling [Not Recovered/Not Resolved]
  - Hypoxia [Unknown]
  - Hyperacusis [Unknown]
  - Anxiety [Unknown]
  - Fall [Unknown]
  - Therapeutic response shortened [Unknown]
  - Generalised tonic-clonic seizure [Not Recovered/Not Resolved]
  - Chronic fatigue syndrome [Unknown]
  - Post-traumatic stress disorder [Unknown]
  - Arthropathy [Unknown]
  - Musculoskeletal pain [Unknown]
  - Pain [Not Recovered/Not Resolved]
  - Sarcoidosis [Not Recovered/Not Resolved]
  - Arthralgia [Unknown]
  - Partial seizures [Unknown]
  - Discomfort [Unknown]
  - Respiratory tract congestion [Unknown]
  - Fibromyalgia [Unknown]
  - Myoclonic epilepsy [Not Recovered/Not Resolved]
  - Erythromelalgia [Unknown]
  - Fatigue [Not Recovered/Not Resolved]
  - Bone fragmentation [Unknown]
  - Intervertebral disc degeneration [Unknown]
  - Rib fracture [Recovering/Resolving]
  - Tinnitus [Unknown]
  - Neuropathy peripheral [Unknown]
  - Muscle disorder [Unknown]
  - Dental caries [Unknown]
  - Neuralgia [Unknown]
  - Ankylosing spondylitis [Unknown]
  - Osteoarthritis [Unknown]
  - Visual impairment [Unknown]
  - Depression [Unknown]
  - Bronchitis chronic [Unknown]

NARRATIVE: CASE EVENT DATE: 201801
